FAERS Safety Report 13321139 (Version 1)
Quarter: 2017Q1

REPORT INFORMATION
  Report Type: Spontaneous
  Country: US (occurrence: US)
  Receive Date: 20170310
  Receipt Date: 20170310
  Transmission Date: 20170428
  Serious: Yes (Other)
  Sender: FDA-Public Use
  Company Number: None

PATIENT
  Age: 69 Year
  Sex: Male
  Weight: 112.5 kg

DRUGS (10)
  1. ZETIA [Concomitant]
     Active Substance: EZETIMIBE
  2. CEFUROXIME. [Suspect]
     Active Substance: CEFUROXIME
     Indication: PROSTATE INFECTION
     Dosage: ?          QUANTITY:20 TABLET(S);?
     Route: 048
     Dates: start: 20161224, end: 20170102
  3. MOBIC [Concomitant]
     Active Substance: MELOXICAM
  4. CEFUROXIME. [Suspect]
     Active Substance: CEFUROXIME
     Indication: SINUSITIS
     Dosage: ?          QUANTITY:20 TABLET(S);?
     Route: 048
     Dates: start: 20161224, end: 20170102
  5. LIPITOR [Concomitant]
     Active Substance: ATORVASTATIN CALCIUM
  6. FLOW MAX [Concomitant]
  7. MAGNESIUM [Concomitant]
     Active Substance: MAGNESIUM
  8. MULTI VITAMIN [Concomitant]
     Active Substance: VITAMINS
  9. CALCIUM [Concomitant]
     Active Substance: CALCIUM
  10. OMEGA 3-6-9 [Concomitant]
     Active Substance: FISH OIL

REACTIONS (3)
  - Skin exfoliation [None]
  - Skin discolouration [None]
  - Penile blister [None]

NARRATIVE: CASE EVENT DATE: 20170102
